FAERS Safety Report 8399257-4 (Version None)
Quarter: 2012Q2

REPORT INFORMATION
  Report Type: 
  Country: None (occurrence: None)
  Receive Date: 20120531
  Receipt Date: 20120521
  Transmission Date: 20120825
  Serious: Yes (Other)
  Sender: FDA-Public Use
  Company Number: BR-GLAXOSMITHKLINE-B0774713A

PATIENT
  Sex: Male

DRUGS (2)
  1. BECLOMETHASONE DIPROPIONATE [Suspect]
     Indication: ASTHMA
     Dosage: 250MCG PER DAY
     Route: 055
     Dates: start: 20111201
  2. CLENIL COMPOSITUM [Concomitant]

REACTIONS (6)
  - COUGH [None]
  - CHEST PAIN [None]
  - OESOPHAGITIS [None]
  - LARYNGITIS [None]
  - ARRHYTHMIA [None]
  - DYSPNOEA [None]
